FAERS Safety Report 22352192 (Version 1)
Quarter: 2023Q2

REPORT INFORMATION
  Report Type: Report from Study
  Country: JP (occurrence: JP)
  Receive Date: 20230522
  Receipt Date: 20230522
  Transmission Date: 20230722
  Serious: Yes (Death)
  Sender: FDA-Public Use
  Company Number: JP-DSJP-DSJ-2023-119790

PATIENT
  Age: 53 Year
  Sex: Male
  Weight: 74.6 kg

DRUGS (8)
  1. EDOXABAN [Suspect]
     Active Substance: EDOXABAN
     Indication: Atrial fibrillation
     Dosage: 60 MG, QD
     Route: 048
     Dates: start: 20200313, end: 20200327
  2. EDOXABAN [Suspect]
     Active Substance: EDOXABAN
     Indication: Deep vein thrombosis
  3. EDOXABAN [Suspect]
     Active Substance: EDOXABAN
     Indication: Prophylaxis
  4. ZINC [Concomitant]
     Active Substance: ZINC
     Indication: Thermal burn
     Dosage: 50 MG, TID
     Route: 048
     Dates: start: 20200311, end: 20200327
  5. PROPRANOLOL HYDROCHLORIDE [Concomitant]
     Active Substance: PROPRANOLOL HYDROCHLORIDE
     Indication: Thermal burn
     Dosage: 5 MG, BID
     Route: 048
     Dates: start: 20200308, end: 20200327
  6. NEXIUM [Concomitant]
     Active Substance: ESOMEPRAZOLE MAGNESIUM
     Indication: Prophylaxis against gastrointestinal ulcer
     Dosage: 10 MG, QD
     Route: 048
     Dates: start: 20200315, end: 20200327
  7. BELSOMRA [Concomitant]
     Active Substance: SUVOREXANT
     Indication: Insomnia
     Dosage: 20 MG, QD
     Route: 048
     Dates: start: 20200310, end: 20200327
  8. ROZEREM [Concomitant]
     Active Substance: RAMELTEON
     Indication: Insomnia
     Dosage: 8 MG, QD
     Route: 048
     Dates: start: 20200310, end: 20200327

REACTIONS (2)
  - Anaemia [Fatal]
  - Sepsis [Fatal]

NARRATIVE: CASE EVENT DATE: 20200325
